FAERS Safety Report 14299869 (Version 1)
Quarter: 2017Q4

REPORT INFORMATION
  Report Type: Spontaneous
  Country: US (occurrence: US)
  Receive Date: 20171219
  Receipt Date: 20171219
  Transmission Date: 20180321
  Serious: No
  Sender: FDA-Public Use
  Company Number: US-BIOGEN-2017BI00497075

PATIENT
  Age: 54 Year
  Sex: Female

DRUGS (1)
  1. ZINBRYTA [Suspect]
     Active Substance: DACLIZUMAB
     Indication: MULTIPLE SCLEROSIS
     Route: 065
     Dates: start: 20171006, end: 20171006

REACTIONS (5)
  - Sleep disorder [Unknown]
  - Muscular weakness [Unknown]
  - Bladder disorder [Unknown]
  - Apathy [Unknown]
  - Pain [Unknown]

NARRATIVE: CASE EVENT DATE: 20171006
